FAERS Safety Report 6169432-8 (Version None)
Quarter: 2009Q2

REPORT INFORMATION
  Report Type: 
  Country: None (occurrence: None)
  Receive Date: 20090428
  Receipt Date: 20090417
  Transmission Date: 20091009
  Serious: Yes (Hospitalization)
  Sender: FDA-Public Use
  Company Number: PHHY2009JP13597

PATIENT
  Age: 67 Year
  Sex: Female
  Weight: 33.4 kg

DRUGS (8)
  1. CYCLOSPORINE [Suspect]
     Indication: PYODERMA GANGRENOSUM
     Dosage: 100 MG/DAY
     Route: 048
     Dates: start: 20070801
  2. CYCLOSPORINE [Suspect]
     Dosage: 150 MG/DAY
     Dates: start: 20070901
  3. PREDNISOLONE [Concomitant]
     Indication: PYODERMA GANGRENOSUM
     Dosage: 20 MG
     Dates: start: 20070701, end: 20070801
  4. BETAMETHASONE [Concomitant]
     Indication: PYODERMA GANGRENOSUM
     Dosage: 3 MG
     Dates: start: 20070801
  5. LECTISOL [Concomitant]
     Indication: PYODERMA GANGRENOSUM
     Dosage: 50 MG
     Dates: start: 20070701
  6. NSAID'S [Concomitant]
     Indication: RHEUMATOID ARTHRITIS
     Dosage: UNK
  7. BUCILLAMINE [Concomitant]
     Dosage: 100 MG
     Dates: start: 19991101
  8. LEUKOPHERESIS [Concomitant]

REACTIONS (3)
  - ATYPICAL MYCOBACTERIAL INFECTION [None]
  - GASTRIC ULCER PERFORATION [None]
  - PERITONITIS [None]
